FAERS Safety Report 10645211 (Version 1)
Quarter: 2014Q4

REPORT INFORMATION
  Report Type: Report from Study
  Country: BR (occurrence: BR)
  Receive Date: 20141211
  Receipt Date: 20141211
  Transmission Date: 20150529
  Serious: Yes (Other)
  Sender: FDA-Public Use
  Company Number: BR-BIOGENIDEC-2014BI130165

PATIENT
  Age: 24 Year
  Sex: Female

DRUGS (4)
  1. VITAMIN D [Concomitant]
     Active Substance: CHOLECALCIFEROL
  2. K2 (VITAMIN SUPPLEMENT) [Concomitant]
     Active Substance: VITAMINS
  3. FAMPYRA [Suspect]
     Active Substance: DALFAMPRIDINE
     Indication: MULTIPLE SCLEROSIS
     Route: 048
     Dates: start: 201410
  4. DH 500 (UNSPECIFIED MEDICINE) [Concomitant]

REACTIONS (3)
  - White blood cell count increased [Unknown]
  - Urinary tract infection [Not Recovered/Not Resolved]
  - Urine calcium increased [Unknown]

NARRATIVE: CASE EVENT DATE: 20141119
